FAERS Safety Report 6711185-6 (Version None)
Quarter: 2010Q2

REPORT INFORMATION
  Report Type: 
  Country: None (occurrence: None)
  Receive Date: 20100504
  Receipt Date: 20100504
  Transmission Date: 20101027
  Serious: No
  Sender: FDA-Public Use
  Company Number: None

PATIENT
  Sex: Female

DRUGS (1)
  1. RIMSO-50 [Suspect]
     Indication: CYSTITIS
     Dosage: 50ML -54GM- X 1 UNK
     Dates: start: 20100427, end: 20100427

REACTIONS (3)
  - CIRCUMSTANCE OR INFORMATION CAPABLE OF LEADING TO MEDICATION ERROR [None]
  - MEDICATION ERROR [None]
  - PRODUCT LABEL ISSUE [None]
